FAERS Safety Report 22314857 (Version 1)
Quarter: 2023Q2

REPORT INFORMATION
  Report Type: Spontaneous
  Country: US (occurrence: None)
  Receive Date: 20230511
  Receipt Date: 20230511
  Transmission Date: 20230722
  Serious: Yes (Other)
  Sender: FDA-Public Use
  Company Number: None

PATIENT
  Age: 40 Year
  Sex: Female
  Weight: 71.2 kg

DRUGS (1)
  1. METHYLPREDNISOLONE [Suspect]
     Active Substance: METHYLPREDNISOLONE
     Indication: Multiple sclerosis
     Dosage: OTHER FREQUENCY : DAILY FOR 5 DAYS;?
     Route: 042
     Dates: start: 20230504, end: 20230508

REACTIONS (7)
  - Palpitations [None]
  - Chest discomfort [None]
  - Headache [None]
  - Cold sweat [None]
  - Infusion related reaction [None]
  - Anxiety [None]
  - Drug intolerance [None]

NARRATIVE: CASE EVENT DATE: 20230505
